FAERS Safety Report 10442243 (Version 2)
Quarter: 2014Q3

REPORT INFORMATION
  Report Type: Report from Study
  Country: US (occurrence: US)
  Receive Date: 20140909
  Receipt Date: 20140909
  Transmission Date: 20150326
  Serious: Yes (Hospitalization)
  Sender: FDA-Public Use
  Company Number: PHEH2014US015230

PATIENT
  Sex: Female
  Weight: 83.9 kg

DRUGS (21)
  1. MORPHINE SULFATE. [Concomitant]
     Active Substance: MORPHINE SULFATE
  2. ESCITALOPRAM OXALATE. [Concomitant]
     Active Substance: ESCITALOPRAM OXALATE
  3. HYDROCHLOORTHIAZIDE [Concomitant]
     Active Substance: HYDROCHLOROTHIAZIDE
  4. PROMETHAZINE [Concomitant]
     Active Substance: PROMETHAZINE\PROMETHAZINE HYDROCHLORIDE
  5. SOMA [Concomitant]
     Active Substance: CARISOPRODOL
  6. NYSTATIN. [Concomitant]
     Active Substance: NYSTATIN
  7. DOCUSATE SODIUM. [Concomitant]
     Active Substance: DOCUSATE SODIUM
  8. TEMAZEPAM. [Concomitant]
     Active Substance: TEMAZEPAM
  9. ALBUTEROL. [Concomitant]
     Active Substance: ALBUTEROL
  10. LIDOCAINE. [Concomitant]
     Active Substance: LIDOCAINE
  11. CAMBIA [Concomitant]
     Active Substance: DICLOFENAC POTASSIUM
  12. PROTONIX [Concomitant]
     Active Substance: PANTOPRAZOLE SODIUM
  13. LEVOTHYROXINE SODIUM. [Concomitant]
     Active Substance: LEVOTHYROXINE SODIUM
  14. BACLOFEN. [Concomitant]
     Active Substance: BACLOFEN
  15. OXYCODONE [Concomitant]
     Active Substance: OXYCODONE
  16. GILENYA [Suspect]
     Active Substance: FINGOLIMOD HYDROCHLORIDE
     Indication: MULTIPLE SCLEROSIS
     Dosage: 0.5 MG, QD
     Route: 048
     Dates: end: 201403
  17. CLEARLAX [Concomitant]
     Active Substance: POLYETHYLENE GLYCOL 3350
  18. DIAZEPAM. [Concomitant]
     Active Substance: DIAZEPAM
  19. IBUPROFEN. [Concomitant]
     Active Substance: IBUPROFEN
  20. LYRICA [Concomitant]
     Active Substance: PREGABALIN
  21. CARISOPRODOL. [Concomitant]
     Active Substance: CARISOPRODOL

REACTIONS (26)
  - Pain [Unknown]
  - Abdominal pain [Unknown]
  - Fatigue [Unknown]
  - Eye pain [Unknown]
  - Chest pain [Unknown]
  - Sleep disorder [Unknown]
  - Multiple sclerosis relapse [Unknown]
  - Musculoskeletal chest pain [Unknown]
  - Temperature intolerance [Unknown]
  - Vibration test abnormal [Unknown]
  - Constipation [Unknown]
  - Polydipsia [Unknown]
  - Hypoaesthesia [Unknown]
  - Sensory loss [Unknown]
  - Coordination abnormal [Unknown]
  - Dysuria [Unknown]
  - Central nervous system lesion [Unknown]
  - Dyspnoea [Unknown]
  - Muscle spasticity [Unknown]
  - Upper motor neurone lesion [Unknown]
  - Headache [Unknown]
  - Nausea [Unknown]
  - Gait disturbance [Unknown]
  - Asthenia [Unknown]
  - Balance disorder [Unknown]
  - Vision blurred [Unknown]
